FAERS Safety Report 8335656-4 (Version None)
Quarter: 2012Q2

REPORT INFORMATION
  Report Type: 
  Country: None (occurrence: None)
  Receive Date: 20120504
  Receipt Date: 20120426
  Transmission Date: 20120825
  Serious: No
  Sender: FDA-Public Use
  Company Number: US-BIOGENIDEC-2010BI016586

PATIENT
  Age: 38 Year
  Sex: Female

DRUGS (5)
  1. TYSABRI [Suspect]
     Indication: MULTIPLE SCLEROSIS
     Route: 042
     Dates: start: 20091221
  2. ELAVIL [Concomitant]
     Indication: SLEEP DISORDER
  3. NUEDEXTA [Concomitant]
     Indication: DEPRESSION
  4. MIRAPEX [Concomitant]
  5. VALIUM [Concomitant]
     Indication: SLEEP DISORDER

REACTIONS (10)
  - VISUAL IMPAIRMENT [None]
  - ASTHENIA [None]
  - DIPLOPIA [None]
  - COGNITIVE DISORDER [None]
  - SKIN DISCOLOURATION [None]
  - PARAESTHESIA [None]
  - TREMOR [None]
  - MULTIPLE SYSTEM ATROPHY [None]
  - HYPOTENSION [None]
  - HEADACHE [None]
